FAERS Safety Report 7534075 (Version 2)
Quarter: 2013Q3

REPORT INFORMATION
  Report Type: Spontaneous
  Country: IT (occurrence: IT)
  Receive Date: 20100809
  Receipt Date: 20130729
  Transmission Date: 20140515
  Serious: Yes (Death)
  Sender: FDA-Public Use
  Company Number: IT-MILLENNIUM PHARMACEUTICALS, INC.-2010-04140

PATIENT
  Sex: 0

DRUGS (1)
  1. VELCADE [Suspect]
     Indication: CRYOGLOBULINAEMIA
     Dosage: 1.3 MG/M2, UNK
     Dates: start: 200902, end: 200905

REACTIONS (1)
  - Aortic aneurysm rupture [Fatal]
